FAERS Safety Report 8320866-2 (Version None)
Quarter: 2012Q2

REPORT INFORMATION
  Report Type: 
  Country: None (occurrence: None)
  Receive Date: 20120430
  Receipt Date: 20120423
  Transmission Date: 20120825
  Serious: Yes (Other)
  Sender: FDA-Public Use
  Company Number: PHEH2012US008704

PATIENT
  Sex: Male

DRUGS (10)
  1. ALBUTEROL SULFATE [Concomitant]
     Dosage: UNK UKN, UNK
  2. DIOVAN [Suspect]
     Dosage: 160 MG, UNK
  3. ADVAIR DISKUS 100/50 [Concomitant]
     Dosage: UNK UKN, UNK
  4. POTASSIUM CHLORIDE [Concomitant]
     Dosage: UNK UKN, UNK
  5. LASIX [Concomitant]
     Dosage: UNK UKN, UNK
  6. MULTI-VITAMINS [Concomitant]
     Dosage: UNK UKN, UNK
  7. ZYRTEC [Concomitant]
     Dosage: UNK UKN, UNK
  8. TYLENOL (CAPLET) [Concomitant]
     Dosage: UNK UKN, UNK
  9. DIOVAN [Suspect]
     Dosage: 1 DF (80 MG), QD
  10. ACCOLATE [Concomitant]
     Dosage: UNK UKN, UNK

REACTIONS (1)
  - CHRONIC OBSTRUCTIVE PULMONARY DISEASE [None]
